FAERS Safety Report 21946980 (Version 2)
Quarter: 2023Q1

REPORT INFORMATION
  Report Type: Spontaneous
  Country: CA (occurrence: CA)
  Receive Date: 20230202
  Receipt Date: 20230320
  Transmission Date: 20230418
  Serious: Yes (Other)
  Sender: FDA-Public Use
  Company Number: CA-PFIZER INC-202300045860

PATIENT
  Age: 38 Year
  Sex: Female

DRUGS (3)
  1. RITUXIMAB [Suspect]
     Active Substance: RITUXIMAB
     Indication: Lupus nephritis
     Dosage: 1 DF ,UNKNOWN DOSE
     Route: 042
     Dates: start: 2009, end: 2009
  2. RITUXIMAB [Suspect]
     Active Substance: RITUXIMAB
     Dosage: 1 DF ,UNKNOWN DOSE
     Route: 042
     Dates: start: 2015, end: 2015
  3. RITUXIMAB [Suspect]
     Active Substance: RITUXIMAB
     Dosage: 1 DF , UNKNOWN DOSE
     Route: 042
     Dates: start: 2020, end: 2020

REACTIONS (2)
  - Nephritis [Unknown]
  - Deep vein thrombosis [Unknown]

NARRATIVE: CASE EVENT DATE: 20090101
